FAERS Safety Report 19409848 (Version 1)
Quarter: 2021Q2

REPORT INFORMATION
  Report Type: Other
  Country: US (occurrence: US)
  Receive Date: 20210614
  Receipt Date: 20210614
  Transmission Date: 20210717
  Serious: No
  Sender: FDA-Public Use
  Company Number: US-NEUROCRINE BIOSCIENCES INC.-2021NBI02765

PATIENT

DRUGS (1)
  1. INGREZZA [Suspect]
     Active Substance: VALBENAZINE
     Indication: DYSTONIA
     Dosage: UNK
     Route: 048
     Dates: start: 20210506, end: 20210524

REACTIONS (5)
  - Off label use [Unknown]
  - Palpitations [Recovered/Resolved]
  - Restless arm syndrome [Recovered/Resolved]
  - Anxiety [Recovered/Resolved]
  - Restless legs syndrome [Recovered/Resolved]

NARRATIVE: CASE EVENT DATE: 20210506
